FAERS Safety Report 5406623-5 (Version None)
Quarter: 2007Q3

REPORT INFORMATION
  Report Type: 
  Country: None (occurrence: None)
  Receive Date: 20070806
  Receipt Date: 20070802
  Transmission Date: 20080115
  Serious: Yes (Other)
  Sender: FDA-Public Use
  Company Number: US-GILEAD-2007-0012407

PATIENT
  Age: 27 Year
  Sex: Male

DRUGS (2)
  1. ATRIPLA [Suspect]
     Indication: HIV INFECTION
     Dates: end: 20070125
  2. AMBIEN [Concomitant]

REACTIONS (2)
  - BLOOD HIV RNA INCREASED [None]
  - VIRAL MUTATION IDENTIFIED [None]
